FAERS Safety Report 8816023 (Version 3)
Quarter: 2012Q4

REPORT INFORMATION
  Report Type: 
  Country: JP (occurrence: JP)
  Receive Date: 20120928
  Receipt Date: 20121109
  Transmission Date: 20130627
  Serious: Yes (Hospitalization)
  Sender: FDA-Public Use
  Company Number: JP-AMGEN-JPNSP2012060925

PATIENT
  Age: 69 Year
  Sex: Female
  Weight: 48 kg

DRUGS (31)
  1. ARANESP [Suspect]
     Indication: NEPHROGENIC ANAEMIA
     Dosage: 60 mug, qd
     Route: 058
     Dates: start: 20120315, end: 20120315
  2. ARANESP [Suspect]
     Dosage: 180 mug, qd
     Route: 058
     Dates: start: 20120409, end: 20120409
  3. ARANESP [Suspect]
     Dosage: 180 mug, qd
     Route: 058
     Dates: start: 20120524, end: 20120524
  4. ARANESP [Suspect]
     Dosage: 180 mug, qd
     Route: 058
     Dates: start: 20120623, end: 20120623
  5. DIOVAN [Concomitant]
     Dosage: 40 mg, qd
     Route: 048
     Dates: start: 20120608
  6. BIOFERMIN [Concomitant]
     Dosage: UNK
     Route: 048
  7. BIOFERMIN [Concomitant]
     Route: 048
  8. POLARAMINE [Concomitant]
     Dosage: UNK
     Route: 048
     Dates: start: 201205
  9. POLARAMINE [Concomitant]
     Route: 048
     Dates: start: 20120524, end: 20121006
  10. PREDONINE [Concomitant]
     Dosage: UNK
     Route: 048
     Dates: start: 201205
  11. PREDONINE [Concomitant]
     Route: 048
     Dates: start: 20120602, end: 20120606
  12. PREDONINE [Concomitant]
     Route: 048
     Dates: start: 20120607, end: 20120611
  13. PREDONINE [Concomitant]
     Route: 048
     Dates: start: 20120612, end: 20120618
  14. PREDONINE [Concomitant]
     Route: 048
     Dates: start: 20120619, end: 20120625
  15. TAKEPRON [Concomitant]
     Dosage: UNK
     Route: 048
  16. TAKEPRON [Concomitant]
     Route: 048
     Dates: start: 20120531, end: 20120712
  17. ADALAT-CR [Concomitant]
     Route: 048
     Dates: end: 20120419
  18. LASIX [Concomitant]
     Route: 048
     Dates: end: 20120712
  19. DEPAS [Concomitant]
     Route: 048
     Dates: start: 20111215, end: 20120731
  20. LAXOBERON [Concomitant]
     Dosage: Uncertainty
     Route: 048
  21. RESTAMIN [Concomitant]
     Dosage: Uncertainty
     Route: 061
     Dates: start: 20120315, end: 20121006
  22. AMLODIN OD [Concomitant]
     Route: 048
     Dates: start: 20120419, end: 20120524
  23. AMLODIN OD [Concomitant]
     Route: 048
     Dates: start: 20120609, end: 20120712
  24. ALOSITOL [Concomitant]
     Route: 048
     Dates: start: 20120419, end: 20120712
  25. RESTAMIN CORTISONE [Concomitant]
     Dosage: Uncertainty
     Route: 061
     Dates: start: 20120524, end: 20121006
  26. MINOFIT [Concomitant]
     Route: 040
     Dates: start: 20120531, end: 20120531
  27. SAXIZON [Concomitant]
     Route: 040
     Dates: start: 20120531, end: 20120531
  28. SAXIZON [Concomitant]
     Route: 040
     Dates: start: 20120531, end: 20120531
  29. SAXIZON [Concomitant]
     Route: 040
     Dates: start: 20120601, end: 20120601
  30. ROCEPHIN [Concomitant]
     Route: 040
     Dates: start: 20120531, end: 20120603
  31. KREMEZIN [Concomitant]
     Route: 048
     Dates: start: 20120608, end: 20120728

REACTIONS (3)
  - Skin reaction [Recovered/Resolved]
  - Erythema [Recovered/Resolved]
  - Rash [Recovered/Resolved]
